FAERS Safety Report 13351474 (Version 2)
Quarter: 2017Q2

REPORT INFORMATION
  Report Type: Spontaneous
  Country: US (occurrence: US)
  Receive Date: 20170320
  Receipt Date: 20170512
  Transmission Date: 20170830
  Serious: No
  Sender: FDA-Public Use
  Company Number: US-ASTRAZENECA-2017SE28058

PATIENT
  Age: 26102 Day
  Sex: Female

DRUGS (2)
  1. BYDUREON [Suspect]
     Active Substance: EXENATIDE
     Indication: TYPE 2 DIABETES MELLITUS
     Route: 058
     Dates: start: 201606
  2. GLIPIZIDE. [Concomitant]
     Active Substance: GLIPIZIDE
     Indication: DIABETES MELLITUS
     Route: 048
     Dates: start: 2016

REACTIONS (6)
  - Needle issue [Unknown]
  - Injection site haemorrhage [Unknown]
  - Drug administration error [Unknown]
  - Device failure [Unknown]
  - Injection site pain [Unknown]
  - Underdose [Unknown]

NARRATIVE: CASE EVENT DATE: 20170312
